FAERS Safety Report 5933737-3 (Version None)
Quarter: 2008Q4

REPORT INFORMATION
  Report Type: 
  Country: None (occurrence: None)
  Receive Date: 20081027
  Receipt Date: 20081015
  Transmission Date: 20090506
  Serious: Yes (Hospitalization)
  Sender: FDA-Public Use
  Company Number: 1000001444

PATIENT
  Age: 88 Year
  Sex: Female

DRUGS (6)
  1. ESCITALOPRAM [Suspect]
     Indication: DEPRESSION
     Dosage: 30 MG (15 MG, 2 IN 1 D), ORAL
     Route: 048
     Dates: end: 20080814
  2. ATACAND [Suspect]
     Indication: HYPERTENSION
     Dosage: 16 MG (16 MG, 1 IN 1 D), ORAL
     Route: 048
     Dates: end: 20080915
  3. MADOPAR (TABLETS) [Concomitant]
  4. OMEPRAZOLE [Concomitant]
  5. CARDYL (TABLETS) [Concomitant]
  6. OSTEOPOR (TABLETS) [Concomitant]

REACTIONS (4)
  - DISORIENTATION [None]
  - DRUG INTERACTION [None]
  - HYPONATRAEMIA [None]
  - OVERDOSE [None]
